FAERS Safety Report 4679290-6 (Version None)
Quarter: 2005Q2

REPORT INFORMATION
  Report Type: 
  Country: None (occurrence: None)
  Receive Date: 20050531
  Receipt Date: 20050524
  Transmission Date: 20051028
  Serious: Yes (Hospitalization)
  Sender: FDA-Public Use
  Company Number: SEWYE697926MAY05

PATIENT
  Age: 40 Year
  Sex: Female

DRUGS (8)
  1. EFFEXOR [Suspect]
     Indication: BIPOLAR I DISORDER
     Dosage: 300 MG DAILY; ORAL
     Route: 048
     Dates: start: 20040301, end: 20040930
  2. TRYPTIZOL (AMITRIPTYLINE HYDROCHLORIDE,, 0) [Suspect]
     Indication: BACK PAIN
     Dosage: 25 MG DAILY; ORAL
     Route: 048
     Dates: start: 20000101, end: 20041001
  3. LITHIONIT (LITHIUM SULFATE) [Concomitant]
  4. MOVICOL (MACROGOL/POTASSIUM CHLORIDE/SODIUM BICARBONATE/SODIUM CHLORID [Concomitant]
  5. OMEPRAZOLE [Concomitant]
  6. PROPAVAN (PROPIOMAZINE MALEATE) [Concomitant]
  7. BEHEPAN (CYANOCOBALAMIN) [Concomitant]
  8. COMBIVENT [Concomitant]

REACTIONS (3)
  - CARDIAC FAILURE [None]
  - ELECTROCARDIOGRAM QT CORRECTED INTERVAL PROLONGED [None]
  - PNEUMONIA [None]
